FAERS Safety Report 24656677 (Version 1)
Quarter: 2024Q4

REPORT INFORMATION
  Report Type: Spontaneous
  Country: CN (occurrence: CN)
  Receive Date: 20241124
  Receipt Date: 20241124
  Transmission Date: 20250115
  Serious: Yes (Hospitalization)
  Sender: ABBVIE
  Company Number: CN-ABBVIE-6012116

PATIENT
  Age: 34 Year
  Sex: Male
  Weight: 51 kg

DRUGS (4)
  1. VENETOCLAX [Suspect]
     Active Substance: VENETOCLAX
     Indication: Leukaemia
     Route: 048
     Dates: start: 20241029, end: 20241111
  2. OMACETAXINE MEPESUCCINATE [Concomitant]
     Active Substance: OMACETAXINE MEPESUCCINATE
     Indication: Leukaemia
     Route: 041
     Dates: start: 20241031, end: 20241106
  3. AZACITIDINE [Concomitant]
     Active Substance: AZACITIDINE
     Indication: Leukaemia
     Route: 041
     Dates: start: 20241029, end: 20241104
  4. CYTARABINE [Concomitant]
     Active Substance: CYTARABINE
     Indication: Leukaemia
     Route: 041
     Dates: start: 20241031, end: 20241113

REACTIONS (4)
  - Pancytopenia [Recovering/Resolving]
  - White blood cell count decreased [Unknown]
  - Neutrophil count decreased [Unknown]
  - Platelet count decreased [Unknown]

NARRATIVE: CASE EVENT DATE: 20241107
